FAERS Safety Report 8472085-7 (Version None)
Quarter: 2012Q2

REPORT INFORMATION
  Report Type: 
  Country: None (occurrence: None)
  Receive Date: 20120323
  Receipt Date: 20110831
  Transmission Date: 20120825
  Serious: Yes (Hospitalization)
  Sender: FDA-Public Use
  Company Number: 163-21880-11090138

PATIENT
  Age: 57 Year
  Sex: Male
  Weight: 83.9154 kg

DRUGS (20)
  1. REVLIMID [Suspect]
     Indication: MULTIPLE MYELOMA
     Dosage: 25 MG, DAILY X 14 DAYS, PO
     Route: 048
     Dates: start: 20110412, end: 20110701
  2. COLACE (DOCUSATE SODIUM) [Concomitant]
  3. MIRALAX [Concomitant]
  4. OXYCONTIN [Concomitant]
  5. WARFARIN SODIUM [Concomitant]
  6. ETOPOSIDE [Concomitant]
  7. DOXORUBICINE (DOXORUBICIN HYDROCHLORIDE) [Concomitant]
  8. CYCLOPHOSPHAMIDE [Concomitant]
  9. DAPSONE [Concomitant]
  10. DEXAMETHASONE [Concomitant]
  11. MULTIVITAMIN [Concomitant]
  12. PROCHLORPERAZINE MALEATE [Concomitant]
  13. ZOFRAN [Concomitant]
  14. CISPLATIN [Concomitant]
  15. LORAZEPAM [Concomitant]
  16. ACYCLOVIR [Concomitant]
  17. OXYCODONE HCL [Concomitant]
  18. THALOMID [Concomitant]
  19. DIFLUCAN [Concomitant]
  20. VELCADE [Concomitant]

REACTIONS (1)
  - APPENDICITIS PERFORATED [None]
